FAERS Safety Report 5167550-4 (Version None)
Quarter: 2006Q4

REPORT INFORMATION
  Report Type: 
  Country: None (occurrence: None)
  Receive Date: 20060830
  Receipt Date: 20060614
  Transmission Date: 20070319
  Serious: No
  Sender: FDA-Public Use
  Company Number: 225334

PATIENT
  Age: 38 Year
  Sex: Female

DRUGS (6)
  1. XOLAIR [Suspect]
     Indication: ASTHMA
     Dosage: 150 MG, 1/MONTH, SUBCUTANEOUS
     Route: 058
     Dates: start: 20060120
  2. PROMOTIL (PROLINTANE HYDROCHLORIDE) [Concomitant]
  3. GAS-X (SIMETHICONE) [Concomitant]
  4. SINGULAIR [Concomitant]
  5. NEXIUM [Concomitant]
  6. CONCOMITANT DRUG (GENERIC COMPONENT(S) NOT KNOWN) [Concomitant]

REACTIONS (1)
  - MUSCULOSKELETAL CHEST PAIN [None]
